FAERS Safety Report 6648183-7 (Version None)
Quarter: 2010Q1

REPORT INFORMATION
  Report Type: 
  Country: None (occurrence: None)
  Receive Date: 20100324
  Receipt Date: 20100317
  Transmission Date: 20100710
  Serious: Yes (Hospitalization)
  Sender: FDA-Public Use
  Company Number: FR-SANOFI-AVENTIS-2010SA015142

PATIENT
  Age: 50 Year
  Sex: Female

DRUGS (8)
  1. ARAVA [Suspect]
     Indication: SPONDYLOARTHROPATHY
     Dosage: DOSE:1 UNIT(S)
     Route: 048
     Dates: end: 20091223
  2. HUMIRA [Suspect]
     Indication: SPONDYLOARTHROPATHY
     Route: 058
     Dates: start: 20080101, end: 20091223
  3. ESTRADIOL [Suspect]
     Route: 062
     Dates: end: 20091223
  4. SKENAN [Suspect]
     Route: 048
  5. ACTISKENAN [Suspect]
     Route: 048
  6. DAFALGAN [Suspect]
     Dosage: DOSE:1 UNIT(S)
     Route: 048
  7. NEXIUM /UNK/ [Suspect]
     Route: 048
  8. PHENYLBUTAZONE [Suspect]
     Route: 048
     Dates: end: 20090801

REACTIONS (2)
  - LYMPHADENOPATHY [None]
  - OVARIAN CANCER [None]
